FAERS Safety Report 5634617-3 (Version None)
Quarter: 2008Q1

REPORT INFORMATION
  Report Type: 
  Country: None (occurrence: None)
  Receive Date: 20080222
  Receipt Date: 20080212
  Transmission Date: 20080703
  Serious: Yes (Hospitalization)
  Sender: FDA-Public Use
  Company Number: US-AMGEN-STX214652

PATIENT
  Sex: Female

DRUGS (4)
  1. ENBREL [Suspect]
     Indication: RHEUMATOID ARTHRITIS
     Route: 058
     Dates: start: 20030801
  2. NEXIUM [Concomitant]
  3. TOPROL-XL [Concomitant]
  4. IBUPROFEN [Concomitant]

REACTIONS (2)
  - SINUS DISORDER [None]
  - STAPHYLOCOCCAL INFECTION [None]
